FAERS Safety Report 8405190-1 (Version None)
Quarter: 2012Q2

REPORT INFORMATION
  Report Type: 
  Country: None (occurrence: None)
  Receive Date: 20120323
  Receipt Date: 20110531
  Transmission Date: 20120825
  Serious: Yes (Hospitalization)
  Sender: FDA-Public Use
  Company Number: 163-21880-11050253

PATIENT
  Age: 45 Year
  Sex: Male
  Weight: 260 kg

DRUGS (1)
  1. REVLIMID [Suspect]
     Indication: MULTIPLE MYELOMA
     Dosage: 10 MG, DAILY FOR 14 DAYS/14 DAYS OFF, PO
     Route: 048
     Dates: start: 20110322, end: 20110529

REACTIONS (3)
  - VOMITING [None]
  - PNEUMONIA [None]
  - HEPATIC ENZYME INCREASED [None]
